FAERS Safety Report 4990373-3 (Version None)
Quarter: 2006Q2

REPORT INFORMATION
  Report Type: 
  Country: None (occurrence: None)
  Receive Date: 20060427
  Receipt Date: 20060414
  Transmission Date: 20061013
  Serious: Yes (Other)
  Sender: FDA-Public Use
  Company Number: HQWYE855218APR06

PATIENT
  Age: 7 Year
  Sex: Male

DRUGS (11)
  1. MYLOTARG [Suspect]
     Indication: ACUTE MYELOID LEUKAEMIA
     Dosage: 6 MG/M^2 1X PER 1 DAY, INTRAVENOUS DRIP
     Route: 041
     Dates: start: 20060118, end: 20060118
  2. MYLOTARG [Suspect]
     Indication: ACUTE MYELOID LEUKAEMIA
     Dosage: 6 MG/M^2 1X PER 1 DAY, INTRAVENOUS DRIP
     Route: 041
     Dates: start: 20060201, end: 20060201
  3. CYTARABINE [Concomitant]
  4. NOVANTRONE [Concomitant]
  5. NEUTROGIN (LENOGRASTIM) [Concomitant]
  6. IDARUBICIN HCL [Concomitant]
  7. FRAGMIN [Concomitant]
  8. FUTHAN (NAFAMOSTAT MESILATE) [Concomitant]
  9. STRONG NEO-MINOPHAGEN C (AMINOACETIC ACID/CYSTEINE/GLYCYRRHIZIC ACID) [Concomitant]
  10. TATHION (GLUTATHIONE) [Concomitant]
  11. FLUDARABINE PHOSPHATE [Concomitant]

REACTIONS (13)
  - ANAEMIA [None]
  - CHILLS [None]
  - DISSEMINATED INTRAVASCULAR COAGULATION [None]
  - DYSPNOEA [None]
  - HEPATIC FUNCTION ABNORMAL [None]
  - HYPOXIA [None]
  - NEUTROPHIL COUNT DECREASED [None]
  - PERICARDIAL EFFUSION [None]
  - PLATELET COUNT DECREASED [None]
  - PLEURAL EFFUSION [None]
  - PYREXIA [None]
  - TUMOUR LYSIS SYNDROME [None]
  - VENTRICULAR DYSFUNCTION [None]
